FAERS Safety Report 9263530 (Version 2)
Quarter: 2014Q1

REPORT INFORMATION
  Report Type: Report from Study
  Country: US (occurrence: US)
  Receive Date: 20130430
  Receipt Date: 20140204
  Transmission Date: 20141002
  Serious: Yes (Hospitalization)
  Sender: FDA-Public Use
  Company Number: US-ROCHE-1199844

PATIENT
  Age: 46 Year
  Sex: Male

DRUGS (30)
  1. VEMURAFENIB [Suspect]
     Indication: PAPILLARY THYROID CANCER
     Dosage: LAST DOSE PRIOR TO SAE: 01/MAR/2013
     Route: 065
     Dates: start: 20120927, end: 20121001
  2. VEMURAFENIB [Suspect]
     Route: 065
     Dates: start: 20121002, end: 20121012
  3. VEMURAFENIB [Suspect]
     Route: 065
     Dates: start: 20121019, end: 20121214
  4. VEMURAFENIB [Suspect]
     Route: 065
     Dates: start: 20121215, end: 20121219
  5. VEMURAFENIB [Suspect]
     Route: 065
     Dates: start: 20121220, end: 20121220
  6. VEMURAFENIB [Suspect]
     Dosage: LAST DOSE PRIOR TO SAE 04/MAR/2013
     Route: 065
     Dates: start: 20121221
  7. ALLOPURINOL [Concomitant]
     Indication: BLOOD URIC ACID INCREASED
     Route: 048
     Dates: start: 20130215
  8. ASTEPRO [Concomitant]
     Indication: ASTHMA
     Route: 065
     Dates: start: 20120620
  9. QVAR [Concomitant]
     Indication: ASTHMA
     Route: 065
     Dates: start: 20090920
  10. CHOLECALCIFEROL [Concomitant]
     Route: 048
     Dates: start: 20120520
  11. COLCHICINE [Concomitant]
     Route: 048
     Dates: start: 20000920
  12. HYDROMORPHONE HCL [Concomitant]
     Indication: ARTHRALGIA
     Dosage: AS  NEEDED
     Route: 048
     Dates: start: 20120927
  13. NOVOLOG [Concomitant]
     Dosage: 100 UNIT/ML
     Route: 058
     Dates: start: 20120520
  14. LANTUS [Concomitant]
     Indication: DIABETES MELLITUS
     Dosage: 100 UNIT/ML, AT BEDTIME
     Route: 058
     Dates: start: 20120520
  15. KEPPRA [Concomitant]
     Route: 048
     Dates: start: 20120406
  16. LEVOXYL [Concomitant]
     Indication: HYPOTHYROIDISM
     Route: 048
     Dates: start: 20090620
  17. LEVOXYL [Concomitant]
     Route: 048
     Dates: start: 20090620
  18. LORAZEPAM [Concomitant]
     Indication: INSOMNIA
     Dosage: AS NEEDED
     Route: 048
     Dates: start: 20120906
  19. LORAZEPAM [Concomitant]
     Indication: ANXIETY
     Route: 048
     Dates: start: 20121025
  20. MAGNESIUM OXIDE [Concomitant]
     Indication: HYPOMAGNESAEMIA
     Route: 048
     Dates: start: 20120921
  21. MEGACE ES [Concomitant]
     Dosage: 625MG/5ML
     Route: 048
     Dates: start: 20120926
  22. NASONEX [Concomitant]
     Indication: ASTHMA
     Dosage: 2 PUFFS
     Route: 065
     Dates: start: 20120620
  23. SINGULAIR [Concomitant]
     Indication: ASTHMA
     Route: 048
     Dates: start: 20000920
  24. POTASSIUM CHLORIDE [Concomitant]
     Route: 048
     Dates: start: 20120921
  25. ACIPHEX [Concomitant]
     Indication: GASTROOESOPHAGEAL REFLUX DISEASE
     Route: 048
     Dates: start: 20120420
  26. CRESTOR [Concomitant]
     Indication: HYPERCHOLESTEROLAEMIA
     Route: 048
     Dates: start: 20120120
  27. IMODIUM A-D [Concomitant]
     Indication: DIARRHOEA
     Route: 048
     Dates: start: 20130212
  28. IMODIUM [Concomitant]
     Indication: DIARRHOEA
     Route: 048
     Dates: start: 20130509, end: 20130703
  29. CIPROFLOXACIN [Concomitant]
     Indication: SINUSITIS
     Route: 048
     Dates: start: 20130621, end: 20130701
  30. NYSTATIN SUSPENSION [Concomitant]
     Dosage: 100000  OTHER,SPECIFY (UNIT/ML)
     Route: 048
     Dates: start: 20140116

REACTIONS (1)
  - Radiation necrosis [Recovered/Resolved]
